FAERS Safety Report 9720490 (Version 2)
Quarter: 2013Q4

REPORT INFORMATION
  Report Type: Report from Study
  Country: BR (occurrence: BR)
  Receive Date: 20131129
  Receipt Date: 20131129
  Transmission Date: 20140711
  Serious: Yes (Hospitalization, Other)
  Sender: FDA-Public Use
  Company Number: BR-ROCHE-1215187

PATIENT
  Age: 36 Year
  Sex: Female
  Weight: 90 kg

DRUGS (12)
  1. MABTHERA [Suspect]
     Indication: RHEUMATOID ARTHRITIS
     Dosage: MOST RECENT DOSE OF RITUXIMAB ON 21/NOV/2013
     Route: 065
     Dates: start: 20110215
  2. PARACETAMOL [Concomitant]
     Indication: PREMEDICATION
  3. POLARAMINE [Concomitant]
     Indication: PREMEDICATION
  4. RETINOL [Concomitant]
  5. MAREVAN [Concomitant]
  6. GABAPENTIN [Concomitant]
     Indication: PAIN
  7. METHOTREXATE [Concomitant]
     Indication: RHEUMATOID ARTHRITIS
  8. FOLIC ACID [Concomitant]
     Indication: RHEUMATOID ARTHRITIS
  9. AZATHIOPRINE [Concomitant]
  10. CHLOROQUINE HYDROCHLORIDE [Concomitant]
  11. PANTOPRAZOL [Concomitant]
  12. XARELTO [Concomitant]

REACTIONS (4)
  - Pneumonia [Recovered/Resolved]
  - Uterine disorder [Unknown]
  - Influenza [Not Recovered/Not Resolved]
  - Therapeutic response decreased [Unknown]
